FAERS Safety Report 23342242 (Version 13)
Quarter: 2025Q3

REPORT INFORMATION
  Report Type: Report from Study
  Country: US (occurrence: US)
  Receive Date: 20231227
  Receipt Date: 20250724
  Transmission Date: 20251020
  Serious: Yes (Hospitalization)
  Sender: IPSEN BIOPHARMACEUTICALS, INC.
  Company Number: US-IPSEN Group, Research and Development-2023-28015

PATIENT
  Age: 37 Year
  Sex: Male

DRUGS (3)
  1. SOHONOS [Suspect]
     Active Substance: PALOVAROTENE
     Indication: Fibrodysplasia ossificans progressiva
     Dosage: CHRONIC DOSE
     Dates: start: 20231222, end: 20231222
  2. SOHONOS [Suspect]
     Active Substance: PALOVAROTENE
     Dosage: 2 CAPSULES BY MOUTH ONE TIME A DAY FOR 4 WEEKS
     Dates: start: 20231223
  3. SOHONOS [Suspect]
     Active Substance: PALOVAROTENE
     Dosage: 1 CAPSULE (10MG) ONE TIME A DAY FOR 8 WEEKS

REACTIONS (7)
  - Condition aggravated [Recovering/Resolving]
  - Hypoaesthesia [Recovering/Resolving]
  - Peripheral swelling [Recovering/Resolving]
  - Compartment syndrome [Recovering/Resolving]
  - Condition aggravated [Not Recovered/Not Resolved]
  - Product dose omission issue [Unknown]
  - Condition aggravated [Unknown]

NARRATIVE: CASE EVENT DATE: 20250630
